FAERS Safety Report 6107780-8 (Version None)
Quarter: 2009Q1

REPORT INFORMATION
  Report Type: 
  Country: None (occurrence: None)
  Receive Date: 20090309
  Receipt Date: 20090227
  Transmission Date: 20090719
  Serious: Yes (Death, Life-Threatening, Hospitalization)
  Sender: FDA-Public Use
  Company Number: B0559221A

PATIENT
  Age: 81 Year
  Sex: Male

DRUGS (9)
  1. PAXIL [Suspect]
     Indication: DEPRESSION
     Route: 048
     Dates: start: 20090109, end: 20090209
  2. DIART [Suspect]
     Indication: HYPERTENSION
     Dosage: 30MG PER DAY
     Route: 048
  3. VASOLAN [Suspect]
     Indication: ARRHYTHMIA
     Dosage: 40MG THREE TIMES PER DAY
     Route: 048
  4. BASEN [Suspect]
     Indication: DIABETES MELLITUS
     Dosage: .3MG THREE TIMES PER DAY
     Route: 048
  5. MAGMITT [Suspect]
     Indication: DRUG USE FOR UNKNOWN INDICATION
     Dosage: 660MG TWICE PER DAY
     Route: 048
  6. BERIZYM [Suspect]
     Indication: DRUG USE FOR UNKNOWN INDICATION
     Dosage: .5MG THREE TIMES PER DAY
     Route: 048
  7. TAMSULOSIN HYDROCHLORIDE [Concomitant]
     Indication: BENIGN PROSTATIC HYPERPLASIA
     Dosage: .2MG PER DAY
     Route: 048
  8. PROPIVERINE HYDROCHLORIDE [Concomitant]
     Indication: POLLAKIURIA
     Dosage: 20MG PER DAY
     Route: 048
  9. UNKNOWN DRUG [Concomitant]
     Indication: ANGINA PECTORIS
     Route: 062

REACTIONS (5)
  - CARDIAC FAILURE CHRONIC [None]
  - DEHYDRATION [None]
  - DEPRESSED LEVEL OF CONSCIOUSNESS [None]
  - HYPERTHERMIA [None]
  - PLATELET COUNT DECREASED [None]
